FAERS Safety Report 14380878 (Version 3)
Quarter: 2018Q2

REPORT INFORMATION
  Report Type: Spontaneous
  Country: CA (occurrence: CA)
  Receive Date: 20180112
  Receipt Date: 20180426
  Transmission Date: 20180711
  Serious: Yes (Other)
  Sender: FDA-Public Use
  Company Number: CA-CONCORDIA PHARMACEUTICALS INC.-GSH201801-000061

PATIENT
  Age: 59 Year
  Sex: Female

DRUGS (13)
  1. ENBREL [Suspect]
     Active Substance: ETANERCEPT
     Indication: RHEUMATOID ARTHRITIS
     Route: 065
  2. ASA [Concomitant]
     Active Substance: ASPIRIN
  3. DESIPRAMINE [Concomitant]
     Active Substance: DESIPRAMINE
  4. ROSUVASTATIN CALCIUM. [Concomitant]
     Active Substance: ROSUVASTATIN CALCIUM
  5. RITUXAN [Suspect]
     Active Substance: RITUXIMAB
     Indication: RHEUMATOID ARTHRITIS
     Route: 042
     Dates: start: 201506, end: 201609
  6. NITROGLYCERIN. [Concomitant]
     Active Substance: NITROGLYCERIN
  7. HYDROXYCHLOROQUINE [Suspect]
     Active Substance: HYDROXYCHLOROQUINE
     Indication: RHEUMATOID ARTHRITIS
     Route: 048
  8. HUMIRA [Suspect]
     Active Substance: ADALIMUMAB
     Indication: PRODUCT USED FOR UNKNOWN INDICATION
     Route: 058
     Dates: start: 201402, end: 201606
  9. METHOTREXATE. [Suspect]
     Active Substance: METHOTREXATE
     Indication: RHEUMATOID ARTHRITIS
     Route: 048
  10. ACTEMRA [Suspect]
     Active Substance: TOCILIZUMAB
     Indication: RHEUMATOID ARTHRITIS
     Route: 042
     Dates: start: 201307, end: 201402
  11. CLONAZEPAM. [Concomitant]
     Active Substance: CLONAZEPAM
  12. GABAPENTIN. [Concomitant]
     Active Substance: GABAPENTIN
  13. LEFLUNOMIDE. [Suspect]
     Active Substance: LEFLUNOMIDE
     Indication: RHEUMATOID ARTHRITIS
     Route: 048

REACTIONS (12)
  - Angina pectoris [Unknown]
  - Cardiac murmur [Unknown]
  - Fatigue [Unknown]
  - Osteoarthritis [Unknown]
  - Drug effect decreased [Unknown]
  - Joint swelling [Unknown]
  - Aspartate aminotransferase increased [Unknown]
  - Arthralgia [Unknown]
  - Dyspnoea exertional [Unknown]
  - Hyperkeratosis [Unknown]
  - Interstitial lung disease [Unknown]
  - Drug intolerance [Unknown]

NARRATIVE: CASE EVENT DATE: 20170303
